FAERS Safety Report 8541185-5 (Version None)
Quarter: 2012Q3

REPORT INFORMATION
  Report Type: 
  Country: None (occurrence: None)
  Receive Date: 20120716
  Receipt Date: 20120709
  Transmission Date: 20120928
  Serious: Yes (Other)
  Sender: FDA-Public Use
  Company Number: DSA_57822_2012

PATIENT
  Sex: Female

DRUGS (2)
  1. XENAZINE [Suspect]
     Indication: DYSKINESIA
     Dosage: 25 MG BID ORAL; 12.5 MG BID ORAL
     Route: 048
     Dates: start: 20120211
  2. XENAZINE [Suspect]
     Indication: DYSKINESIA
     Dosage: 25 MG BID ORAL; 12.5 MG BID ORAL
     Route: 048
     Dates: start: 20120125, end: 20120210

REACTIONS (6)
  - BIPOLAR DISORDER [None]
  - SWOLLEN TONGUE [None]
  - GLOSSODYNIA [None]
  - DRY MOUTH [None]
  - COUGH [None]
  - CONDITION AGGRAVATED [None]
